FAERS Safety Report 8102488-1 (Version None)
Quarter: 2011Q4

REPORT INFORMATION
  Report Type: 
  Country: None (occurrence: None)
  Receive Date: 20111222
  Receipt Date: 20111027
  Transmission Date: 20120403
  Serious: Yes (Hospitalization)
  Sender: FDA-Public Use
  Company Number: UTC-010022

PATIENT
  Age: 72 Year
  Sex: Female
  Weight: 59.5 kg

DRUGS (3)
  1. DIURETICS (DIURETICS) (UNKNOWN) [Concomitant]
  2. REVATIO (SILDENAFIL CITRATE) (UNKNOWN) [Concomitant]
  3. TYVASO [Suspect]
     Indication: PULMONARY ARTERIAL HYPERTENSION
     Dosage: 216 MCG (54 MCG, 4 IN 1 D), INHALATION
     Route: 055
     Dates: start: 20110607

REACTIONS (1)
  - PULMONARY ARTERIAL HYPERTENSION [None]
